FAERS Safety Report 7439997-4 (Version None)
Quarter: 2011Q2

REPORT INFORMATION
  Report Type: 
  Country: None (occurrence: None)
  Receive Date: 20110427
  Receipt Date: 20110425
  Transmission Date: 20111010
  Serious: Yes (Death, Hospitalization)
  Sender: FDA-Public Use
  Company Number: PHHY2011MX33538

PATIENT
  Sex: Female

DRUGS (1)
  1. EXFORGE [Suspect]
     Indication: HYPERTENSION
     Dosage: 160 MG VALS AND 5 MG AMLO (1 DF DAILY)
     Route: 048
     Dates: start: 20080401

REACTIONS (3)
  - PNEUMONIA [None]
  - FEELING ABNORMAL [None]
  - INFARCTION [None]
